FAERS Safety Report 5982178-1 (Version None)
Quarter: 2008Q4

REPORT INFORMATION
  Report Type: 
  Country: None (occurrence: None)
  Receive Date: 20081208
  Receipt Date: 20081201
  Transmission Date: 20090506
  Serious: Yes (Other)
  Sender: FDA-Public Use
  Company Number: A0749657A

PATIENT
  Sex: Male

DRUGS (1)
  1. ADVAIR HFA [Suspect]
     Route: 055
     Dates: start: 20030101

REACTIONS (5)
  - FACIAL PALSY [None]
  - HERPES ZOSTER [None]
  - INHALATION THERAPY [None]
  - LIP PAIN [None]
  - SCAB [None]
